FAERS Safety Report 9391242 (Version 1)
Quarter: 2013Q3

REPORT INFORMATION
  Report Type: Spontaneous
  Country: FR (occurrence: FR)
  Receive Date: 20130709
  Receipt Date: 20130709
  Transmission Date: 20140515
  Serious: Yes (Hospitalization)
  Sender: FDA-Public Use
  Company Number: FR-TEVA-416992ISR

PATIENT
  Age: 64 Year
  Sex: Female

DRUGS (2)
  1. OXALIPLATIN TEVA [Suspect]
     Indication: LUNG NEOPLASM
     Dosage: 139 MILLIGRAM DAILY;
     Route: 042
     Dates: start: 20120404, end: 20120404
  2. XELODA [Suspect]
     Indication: LUNG NEOPLASM
     Dosage: 3300 MILLIGRAM DAILY;
     Route: 048
     Dates: start: 20120404, end: 20120404

REACTIONS (8)
  - Vomiting [Recovered/Resolved]
  - Nausea [Recovered/Resolved]
  - Paraesthesia [Not Recovered/Not Resolved]
  - Neuropathy peripheral [Not Recovered/Not Resolved]
  - Condition aggravated [Unknown]
  - Weight decreased [Unknown]
  - Gastrointestinal toxicity [Unknown]
  - Gastrointestinal disorder [Unknown]
